FAERS Safety Report 5040509-3 (Version None)
Quarter: 2006Q2

REPORT INFORMATION
  Report Type: 
  Country: None (occurrence: None)
  Receive Date: 20060627
  Receipt Date: 20060627
  Transmission Date: 20061013
  Serious: Yes (Death, Hospitalization)
  Sender: FDA-Public Use
  Company Number: None

PATIENT
  Age: 59 Year
  Sex: Male
  Weight: 107 kg

DRUGS (1)
  1. ERYTHROPOETIN 40,000 UNITS [Suspect]
     Indication: ANAEMIA
     Dosage: 40, 000 UNITS Q WEEK SQ
     Route: 058
     Dates: start: 20050809, end: 20060417

REACTIONS (41)
  - ATRIAL FIBRILLATION [None]
  - BLOOD PRESSURE IMMEASURABLE [None]
  - BRONCHIAL OBSTRUCTION [None]
  - CARDIAC ARREST [None]
  - CEREBRAL ISCHAEMIA [None]
  - CEREBROVASCULAR ACCIDENT [None]
  - CONFUSIONAL STATE [None]
  - DEHYDRATION [None]
  - DRUG DOSE OMISSION [None]
  - DRUG INEFFECTIVE [None]
  - DYSARTHRIA [None]
  - DYSPNOEA [None]
  - EMBOLISM [None]
  - FACIAL PALSY [None]
  - HAEMATOCRIT INCREASED [None]
  - HAEMODIALYSIS [None]
  - HAEMOGLOBIN INCREASED [None]
  - HEADACHE [None]
  - HEMIPARESIS [None]
  - HYPERHIDROSIS [None]
  - HYPERTENSION [None]
  - HYPERVISCOSITY SYNDROME [None]
  - HYPOPERFUSION [None]
  - HYPOTENSION [None]
  - HYPOXIA [None]
  - INTERNATIONAL NORMALISED RATIO ABNORMAL [None]
  - LOSS OF CONSCIOUSNESS [None]
  - MEDICATION ERROR [None]
  - MENTAL STATUS CHANGES [None]
  - NAUSEA [None]
  - NERVOUS SYSTEM DISORDER [None]
  - NEUROLOGICAL SYMPTOM [None]
  - PNEUMOTHORAX [None]
  - POLYCYTHAEMIA [None]
  - SEDATION [None]
  - TACHYCARDIA [None]
  - TACHYPNOEA [None]
  - TENSION HEADACHE [None]
  - TREATMENT NONCOMPLIANCE [None]
  - TROPONIN INCREASED [None]
  - VISUAL DISTURBANCE [None]
